FAERS Safety Report 16369260 (Version 5)
Quarter: 2019Q3

REPORT INFORMATION
  Report Type: Spontaneous
  Country: BR (occurrence: BR)
  Receive Date: 20190529
  Receipt Date: 20190731
  Transmission Date: 20191004
  Serious: Yes (Other)
  Sender: FDA-Public Use
  Company Number: BR-BMRNJP-BR-2019-123883

PATIENT
  Age: 17 Year
  Sex: Male
  Weight: 25 kg

DRUGS (1)
  1. VIMIZIM [Suspect]
     Active Substance: ELOSULFASE ALFA
     Indication: MUCOPOLYSACCHARIDOSIS IV
     Dosage: UNK UNK, QW
     Route: 042
     Dates: start: 20161025

REACTIONS (3)
  - Arrhythmia [Not Recovered/Not Resolved]
  - Product dose omission [Unknown]
  - Heart rate increased [Not Recovered/Not Resolved]

NARRATIVE: CASE EVENT DATE: 201903
